FAERS Safety Report 5029524-3 (Version None)
Quarter: 2006Q2

REPORT INFORMATION
  Report Type: 
  Country: None (occurrence: None)
  Receive Date: 20060620
  Receipt Date: 20051201
  Transmission Date: 20061013
  Serious: Yes (Other)
  Sender: FDA-Public Use
  Company Number: US-GLAXOSMITHKLINE-A0584339A

PATIENT
  Age: 30 Year
  Sex: Male
  Weight: 75.5 kg

DRUGS (2)
  1. ZYBAN [Suspect]
     Dosage: 150MG IN THE MORNING
     Route: 048
     Dates: start: 20050907
  2. NO CONCURRENT MEDICATIONS [Concomitant]

REACTIONS (13)
  - AGGRESSION [None]
  - AGITATION [None]
  - AMNESIA [None]
  - CONFUSIONAL STATE [None]
  - DEPRESSION [None]
  - DISORIENTATION [None]
  - DRUG INEFFECTIVE [None]
  - FEELING ABNORMAL [None]
  - LETHARGY [None]
  - MOOD ALTERED [None]
  - PERSONALITY CHANGE [None]
  - SOMNOLENCE [None]
  - VERBAL ABUSE [None]
